FAERS Safety Report 5078142-X (Version None)
Quarter: 2006Q3

REPORT INFORMATION
  Report Type: 
  Country: None (occurrence: None)
  Receive Date: 20060811
  Receipt Date: 20060731
  Transmission Date: 20061208
  Serious: Yes (Hospitalization)
  Sender: FDA-Public Use
  Company Number: AU-JNJFOC-20060800699

PATIENT
  Age: 90 Year
  Sex: Female

DRUGS (5)
  1. TRAMADOL HCL [Suspect]
     Indication: PAIN
     Route: 048
  2. ERGOCALCIFEROL [Concomitant]
     Route: 065
  3. CARBIMAZOLE [Concomitant]
     Route: 065
  4. RALOXIFENE [Concomitant]
     Route: 065
  5. CALCIUM CARBONATE [Concomitant]
     Route: 065

REACTIONS (1)
  - HYPONATRAEMIA [None]
